FAERS Safety Report 7476205-2 (Version None)
Quarter: 2011Q2

REPORT INFORMATION
  Report Type: 
  Country: None (occurrence: None)
  Receive Date: 20110512
  Receipt Date: 20110503
  Transmission Date: 20111010
  Serious: Yes (Other)
  Sender: FDA-Public Use
  Company Number: GB-WATSON-2011-06520

PATIENT
  Age: 23 Year
  Sex: Female

DRUGS (4)
  1. ORAL CONTRACEPTIVE NOS [Suspect]
     Indication: ORAL CONTRACEPTION
     Dosage: UNK
  2. INSULIN [Suspect]
     Indication: TYPE 1 DIABETES MELLITUS
     Dosage: UNK
  3. SIMVASTATIN [Suspect]
     Indication: HYPERCHOLESTEROLAEMIA
     Dosage: UNK
  4. FORTAMET [Suspect]
     Indication: TYPE 1 DIABETES MELLITUS
     Dosage: UNK

REACTIONS (2)
  - DIABETIC KETOACIDOSIS [None]
  - BLINDNESS [None]
